FAERS Safety Report 8417176-1 (Version None)
Quarter: 2012Q2

REPORT INFORMATION
  Report Type: 
  Country: None (occurrence: None)
  Receive Date: 20120606
  Receipt Date: 20120604
  Transmission Date: 20120825
  Serious: Yes (Death)
  Sender: FDA-Public Use
  Company Number: CN-PFIZER INC-2012127362

PATIENT
  Age: 76 Year
  Sex: Male

DRUGS (2)
  1. GLEEVEC [Concomitant]
     Indication: GASTROINTESTINAL STROMAL TUMOUR
     Dosage: 400 MG, 1X/DAY
  2. SUTENT [Suspect]
     Indication: GASTROINTESTINAL STROMAL TUMOUR
     Dosage: 50 MG, ONCE DAILY, ON A SCHEDULE OF 4 WEEKS ON TREATMENT FOLLOWED BY 2 WEEKS OFF (SCHEDULE 4/2)

REACTIONS (3)
  - DISEASE PROGRESSION [None]
  - DEATH [None]
  - GASTROINTESTINAL STROMAL TUMOUR [None]
